FAERS Safety Report 18666953 (Version 1)
Quarter: 2020Q4

REPORT INFORMATION
  Report Type: Spontaneous
  Country: IT (occurrence: IT)
  Receive Date: 20201228
  Receipt Date: 20201228
  Transmission Date: 20210114
  Serious: Yes (Other)
  Sender: FDA-Public Use
  Company Number: IT-TEVA-2020-IT-1861402

PATIENT
  Age: 70 Year
  Sex: Male
  Weight: 65 kg

DRUGS (3)
  1. PACLITAXEL TEVA [Suspect]
     Active Substance: PACLITAXEL
     Indication: BREAST CANCER
     Dosage: 133.6 MILLIGRAM
     Route: 041
     Dates: start: 20201207, end: 20201207
  2. HERCEPTIN [Concomitant]
     Active Substance: TRASTUZUMAB
     Indication: BREAST CANCER
     Dosage: 520 MILLIGRAM
     Route: 041
     Dates: start: 20201207, end: 20201207
  3. PERJETA [Concomitant]
     Active Substance: PERTUZUMAB
     Indication: BREAST CANCER
     Dosage: 840 MILLIGRAM
     Route: 041
     Dates: start: 20201207, end: 20201207

REACTIONS (2)
  - Acute respiratory failure [Unknown]
  - Hypotension [Unknown]
